FAERS Safety Report 8156258-9 (Version None)
Quarter: 2012Q1

REPORT INFORMATION
  Report Type: 
  Country: None (occurrence: None)
  Receive Date: 20120222
  Receipt Date: 20120210
  Transmission Date: 20120608
  Serious: Yes (Hospitalization, Other)
  Sender: FDA-Public Use
  Company Number: IE-MEDIMMUNE-MEDI-0014897

PATIENT
  Sex: Female

DRUGS (3)
  1. ALBUTEROL SULFATE AUTOHALER [Concomitant]
     Route: 055
  2. SYNAGIS [Suspect]
     Route: 030
     Dates: start: 20120210, end: 20120210
  3. SYNAGIS [Suspect]
     Route: 030
     Dates: start: 20101110, end: 20101110

REACTIONS (3)
  - BRONCHIOLITIS [None]
  - TONSILLITIS [None]
  - SEPSIS [None]
